FAERS Safety Report 23535878 (Version 1)
Quarter: 2024Q1

REPORT INFORMATION
  Report Type: Other
  Country: GB (occurrence: GB)
  Receive Date: 20240219
  Receipt Date: 20240219
  Transmission Date: 20240409
  Serious: Yes (Life-Threatening)
  Sender: FDA-Public Use
  Company Number: None

PATIENT
  Age: 74 Year
  Sex: Male
  Weight: 76 kg

DRUGS (6)
  1. NAPROXEN [Suspect]
     Active Substance: NAPROXEN
     Indication: Ill-defined disorder
     Dosage: UNK
     Route: 065
     Dates: start: 20240131
  2. AMLODIPINE [Concomitant]
     Active Substance: AMLODIPINE BESYLATE
     Indication: Ill-defined disorder
     Dosage: UNK (ONE TO BE TAKEN EACH DAY)
     Route: 065
     Dates: start: 20230531
  3. ATORVASTATIN [Concomitant]
     Active Substance: ATORVASTATIN
     Indication: Ill-defined disorder
     Dosage: UNK (ONE TO BE TAKEN EACH DAY)
     Route: 065
     Dates: start: 20230531
  4. LANSOPRAZOLE [Concomitant]
     Active Substance: LANSOPRAZOLE
     Indication: Ill-defined disorder
     Dosage: UNK,(TAKE ONE ONCE DAILY WHILST TAKING NAPROXEN)
     Route: 065
     Dates: start: 20240117
  5. LOSARTAN [Concomitant]
     Active Substance: LOSARTAN
     Indication: Ill-defined disorder
     Dosage: UNK (TAKE ONE DAILY)
     Route: 065
     Dates: start: 20230531
  6. NAPROXEN [Concomitant]
     Active Substance: NAPROXEN
     Indication: Ill-defined disorder
     Dosage: UNK, (TAKE ONE TWICE DAILY WITH FOOD)
     Route: 065
     Dates: start: 20240117, end: 20240131

REACTIONS (1)
  - Adverse drug reaction [Recovered/Resolved]

NARRATIVE: CASE EVENT DATE: 20240131
